FAERS Safety Report 4834730-4 (Version None)
Quarter: 2005Q4

REPORT INFORMATION
  Report Type: 
  Country: None (occurrence: None)
  Receive Date: 20051122
  Receipt Date: 20050725
  Transmission Date: 20060501
  Serious: No
  Sender: FDA-Public Use
  Company Number: US-BRISTOL-MYERS SQUIBB COMPANY-13048970

PATIENT
  Age: 76 Year
  Sex: Male
  Weight: 77 kg

DRUGS (3)
  1. PRAVACHOL [Suspect]
     Indication: BLOOD CHOLESTEROL INCREASED
     Route: 048
     Dates: start: 20050701, end: 20050723
  2. PLAVIX [Suspect]
     Indication: CARDIAC DISORDER
     Route: 048
  3. XALATAN [Concomitant]

REACTIONS (2)
  - PENILE HAEMORRHAGE [None]
  - RECTAL HAEMORRHAGE [None]
